FAERS Safety Report 9297761 (Version 1)
Quarter: 2013Q2

REPORT INFORMATION
  Report Type: Spontaneous
  Country: US (occurrence: None)
  Receive Date: 20130517
  Receipt Date: 20130517
  Transmission Date: 20140414
  Serious: Yes (Hospitalization)
  Sender: FDA-Public Use
  Company Number: None

PATIENT
  Age: 69 Year
  Sex: Female

DRUGS (11)
  1. PLAQUENIL [Suspect]
     Dates: start: 20101119, end: 20101217
  2. IBUPROFEN [Suspect]
     Dates: start: 2003, end: 20101110
  3. ALEVE [Suspect]
     Dates: start: 20100201, end: 20101012
  4. FAMOTIDINE [Concomitant]
  5. FLUOXETINE [Concomitant]
  6. LEVOTHYROXINE [Concomitant]
  7. LORATADINE [Concomitant]
  8. MOMETASONE [Concomitant]
  9. CHONDROITIN [Concomitant]
  10. GLUCOSAMINE [Concomitant]
  11. GLUCOSAMINE/CHONDROITIN SULFATE [Concomitant]

REACTIONS (9)
  - Drug-induced liver injury [None]
  - Blood alkaline phosphatase increased [None]
  - Aspartate aminotransferase increased [None]
  - Alanine aminotransferase increased [None]
  - Cholestasis [None]
  - Autoimmune hepatitis [None]
  - Hypervitaminosis [None]
  - Pancreatic carcinoma metastatic [None]
  - Biliary dilatation [None]
